FAERS Safety Report 24357690 (Version 1)
Quarter: 2024Q3

REPORT INFORMATION
  Report Type: Spontaneous
  Country: DE (occurrence: DE)
  Receive Date: 20240924
  Receipt Date: 20240924
  Transmission Date: 20241017
  Serious: Yes (Other)
  Sender: NOVARTIS
  Company Number: DE-ITM MEDICAL ISOTOPES GMBH-ITMDE2022000067

PATIENT
  Age: 82 Year
  Sex: Male

DRUGS (4)
  1. LUTETIUM CHLORIDE LU-177 [Suspect]
     Active Substance: LUTETIUM CHLORIDE LU-177
     Indication: Radioisotope therapy
     Dosage: FIRST TWO CYCLES OF [177LU]LU-HA-DOTATATE: MEAN ACTIVITY OF 3.5 GBQ (RANGE 3?4.2 GBQ); OTHER CYCLES
     Route: 065
  2. LUTETIUM OXODOTREOTIDE LU-177 [Suspect]
     Active Substance: LUTETIUM OXODOTREOTIDE LU-177
     Indication: Neuroendocrine carcinoma of the skin
     Dosage: FIRST TWO CYCLES OF [177LU]LU-HA-DOTATATE: MEAN ACTIVITY OF 3.5 GBQ (RANGE 3?4.2 GBQ); OTHER CYCLES
     Route: 042
  3. AMINO ACIDS, SOURCE UNSPECIFIED [Concomitant]
     Active Substance: AMINO ACIDS, SOURCE UNSPECIFIED
     Indication: Product used for unknown indication
     Dosage: UNK
     Route: 065
  4. PEMBROLIZUMAB [Concomitant]
     Active Substance: PEMBROLIZUMAB
     Indication: Neuroendocrine carcinoma of the skin
     Dosage: PEMBROLIZUMAB (FIXED DOSE OF 200 MG) WAS REGULARLY GIVEN EVERY THREE WEEKS.PRRT AND PEMBROLIZUMAB WE
     Route: 065

REACTIONS (3)
  - Merkel cell polyomavirus infection [Unknown]
  - Lymphocyte count decreased [Unknown]
  - Eosinophilia [Unknown]
